FAERS Safety Report 17025273 (Version 1)
Quarter: 2019Q4

REPORT INFORMATION
  Report Type: Report from Study
  Country: AU (occurrence: AU)
  Receive Date: 20191113
  Receipt Date: 20191113
  Transmission Date: 20200122
  Serious: Yes (Other)
  Sender: FDA-Public Use
  Company Number: PHHO2014AU002714

PATIENT
  Age: 62 Year
  Sex: Male
  Weight: 89 kg

DRUGS (3)
  1. AMOXICILLIN. [Suspect]
     Active Substance: AMOXICILLIN
     Dosage: 500 MG, TID
     Route: 048
     Dates: start: 20140213, end: 20140217
  2. DIPHERELINE [Concomitant]
     Active Substance: TRIPTORELIN ACETATE
     Indication: PROSTATE CANCER
     Dosage: 11.25 MG, 3 MONTHLY
     Route: 030
     Dates: start: 20140109
  3. ZOLEDRONIC ACID [Suspect]
     Active Substance: ZOLEDRONIC ACID
     Indication: PROSTATE CANCER
     Dosage: CODE NOT BROKEN
     Route: 042
     Dates: start: 20140128

REACTIONS (2)
  - Influenza like illness [Recovered/Resolved]
  - Liver function test abnormal [Unknown]

NARRATIVE: CASE EVENT DATE: 20140130
